FAERS Safety Report 4554994-4 (Version None)
Quarter: 2004Q4

REPORT INFORMATION
  Report Type: 
  Country: None (occurrence: None)
  Receive Date: 20041228
  Receipt Date: 20040303
  Transmission Date: 20050328
  Serious: Yes (Hospitalization)
  Sender: FDA-Public Use
  Company Number: US-JNJFOC-20031004852

PATIENT
  Age: 45 Year
  Sex: Female
  Weight: 97.0698 kg

DRUGS (3)
  1. ORTHO TRI-CYCLEN LO [Suspect]
     Indication: MENORRHAGIA
     Dosage: 1 DOSE(S), 1 IN 1 DAY, ORAL
     Route: 048
     Dates: start: 20030926, end: 20031010
  2. ACETYLSALICYLIC ACID SRT [Concomitant]
  3. FERROUS SULFATE TAB [Concomitant]

REACTIONS (3)
  - HYPOKALAEMIA [None]
  - PAIN IN EXTREMITY [None]
  - PULMONARY EMBOLISM [None]
